FAERS Safety Report 18629458 (Version 3)
Quarter: 2021Q1

REPORT INFORMATION
  Report Type: Spontaneous
  Country: US (occurrence: US)
  Receive Date: 20201217
  Receipt Date: 20210324
  Transmission Date: 20210419
  Serious: No
  Sender: FDA-Public Use
  Company Number: US-BRISTOL-MYERS SQUIBB COMPANY-BMS-2020-108027

PATIENT
  Sex: Male
  Weight: 65.76 kg

DRUGS (4)
  1. ORENCIA [Interacting]
     Active Substance: ABATACEPT
     Indication: PRODUCT USED FOR UNKNOWN INDICATION
     Dosage: 125 MILLIGRAM, QWK
     Route: 058
  2. ORENCIA [Suspect]
     Active Substance: ABATACEPT
     Indication: PRODUCT USED FOR UNKNOWN INDICATION
     Dosage: 125 MILLIGRAM, QWK
     Route: 058
  3. ORENCIA [Interacting]
     Active Substance: ABATACEPT
     Dosage: STRENGTH: 125MG/ML, ONCE DAILY
     Route: 058
  4. ORENCIA [Interacting]
     Active Substance: ABATACEPT
     Dosage: STRENGTH: 125MG/ML, ONCE DAILY
     Route: 058

REACTIONS (3)
  - Off label use [Unknown]
  - Weight decreased [Unknown]
  - Weight increased [Unknown]
